FAERS Safety Report 17654259 (Version 2)
Quarter: 2020Q2

REPORT INFORMATION
  Report Type: Spontaneous
  Country: JP (occurrence: JP)
  Receive Date: 20200410
  Receipt Date: 20200420
  Transmission Date: 20200713
  Serious: Yes (Other)
  Sender: FDA-Public Use
  Company Number: JP-ROCHE-2577526

PATIENT
  Age: 66 Year
  Sex: Female

DRUGS (2)
  1. ALTEPLASE. [Suspect]
     Active Substance: ALTEPLASE
     Indication: MACULAR DYSTROPHY CONGENITAL
     Dosage: UNK
     Route: 065
     Dates: start: 201510
  2. LUCENTIS [Suspect]
     Active Substance: RANIBIZUMAB
     Indication: MACULAR DYSTROPHY CONGENITAL
     Dosage: UNK
     Route: 031
     Dates: start: 201510

REACTIONS (6)
  - Macular degeneration [Unknown]
  - Off label use [Unknown]
  - Metamorphopsia [Unknown]
  - Macular hole [Unknown]
  - Visual impairment [Unknown]
  - Intentional product use issue [Unknown]
